FAERS Safety Report 7974414-7 (Version None)
Quarter: 2011Q4

REPORT INFORMATION
  Report Type: 
  Country: None (occurrence: None)
  Receive Date: 20111213
  Receipt Date: 20111206
  Transmission Date: 20120403
  Serious: Yes (Hospitalization)
  Sender: FDA-Public Use
  Company Number: US-NOVOPROD-327722

PATIENT
  Sex: Male
  Weight: 66.7 kg

DRUGS (8)
  1. INSULATARD FLEXPEN HM(GE) [Suspect]
     Indication: TYPE 1 DIABETES MELLITUS
     Dosage: 18 U, QD
     Route: 058
     Dates: start: 20100927, end: 20101004
  2. IDEG FLEXPEN [Suspect]
     Dosage: 20 IU, QD
     Route: 058
     Dates: start: 20101005, end: 20110503
  3. LIPITOR [Concomitant]
     Indication: LIPIDS
     Dosage: 40 MG, QD
     Dates: start: 20090501
  4. ELDERBERRY [Concomitant]
     Indication: MEDICAL DIET
     Dosage: 1000 MG, QD
     Dates: start: 20091003
  5. NOVORAPID FLEXPEN [Suspect]
     Indication: TYPE 1 DIABETES MELLITUS
     Dosage: 30 U, QD (MAIN TRIAL)
     Route: 058
     Dates: start: 20090928, end: 20101004
  6. IDEG FLEXPEN [Suspect]
     Indication: TYPE 1 DIABETES MELLITUS
     Dosage: 18 IU, QD
     Route: 058
     Dates: start: 20090928, end: 20100926
  7. NOVORAPID FLEXPEN [Suspect]
     Dosage: 32 IU, QD
     Route: 058
     Dates: start: 20101005, end: 20110503
  8. ASPIRIN [Concomitant]
     Indication: PROPHYLAXIS
     Dosage: 81 MG, QD
     Dates: start: 20060101

REACTIONS (13)
  - COMMUNICATION DISORDER [None]
  - BALANCE DISORDER [None]
  - CONVULSION [None]
  - GLIOBLASTOMA [None]
  - AGGRESSION [None]
  - CRANIOCEREBRAL INJURY [None]
  - ROAD TRAFFIC ACCIDENT [None]
  - SUBDURAL HAEMORRHAGE [None]
  - COMA [None]
  - AGITATION [None]
  - CONFUSIONAL STATE [None]
  - PNEUMONIA [None]
  - BLOOD GLUCOSE FLUCTUATION [None]
